FAERS Safety Report 12241846 (Version 1)
Quarter: 2016Q2

REPORT INFORMATION
  Report Type: Spontaneous
  Country: US (occurrence: None)
  Receive Date: 20160405
  Receipt Date: 20160405
  Transmission Date: 20160815
  Serious: Yes (Life-Threatening, Hospitalization)
  Sender: FDA-Public Use
  Company Number: None

PATIENT
  Age: 49 Year
  Sex: Female
  Weight: 90.72 kg

DRUGS (8)
  1. LISINOPRIL INTERGITY PHRAMACEU [Suspect]
     Active Substance: LISINOPRIL
     Indication: HYPERTENSION
     Dosage: 40MG 1 PILL DAILY BY MOUTH
     Route: 048
     Dates: end: 20160315
  2. NITROGLECRIN [Concomitant]
  3. METFORMIN [Concomitant]
     Active Substance: METFORMIN HYDROCHLORIDE
  4. ASPIRIN. [Concomitant]
     Active Substance: ASPIRIN
  5. CPAP NUBLIZER [Concomitant]
  6. LEMINA PA (INSULIN) [Concomitant]
  7. NAPROKEN [Concomitant]
  8. HUMALOG (INSULIN) [Concomitant]

REACTIONS (4)
  - Hypersensitivity [None]
  - Dyspnoea [None]
  - Swelling face [None]
  - Chest pain [None]

NARRATIVE: CASE EVENT DATE: 20160314
